FAERS Safety Report 17343122 (Version 11)
Quarter: 2022Q4

REPORT INFORMATION
  Report Type: Spontaneous
  Country: US (occurrence: US)
  Receive Date: 20200129
  Receipt Date: 20221230
  Transmission Date: 20230113
  Serious: Yes (Other)
  Sender: FDA-Public Use
  Company Number: US-VERTEX PHARMACEUTICALS-2020-001238

PATIENT
  Age: 12 Year
  Sex: Male
  Weight: 53 kg

DRUGS (5)
  1. TRIKAFTA [Suspect]
     Active Substance: ELEXACAFTOR\IVACAFTOR\TEZACAFTOR
     Indication: Cystic fibrosis
     Dosage: 2 TABS AM; 1 TAB PM
     Route: 048
     Dates: start: 20200122, end: 20200205
  2. TRIKAFTA [Suspect]
     Active Substance: ELEXACAFTOR\IVACAFTOR\TEZACAFTOR
     Dosage: ONLY MORNING PILLS NO EVENING PILLS QD
     Route: 048
     Dates: start: 20220118, end: 2022
  3. KITABIS PAK [Concomitant]
     Active Substance: TOBRAMYCIN
     Dosage: UNK
  4. EX-LAX REGULAR STRENGTH STIMULANT LAXATIVE [Concomitant]
     Active Substance: SENNOSIDES
  5. DUPLEX [Concomitant]

REACTIONS (5)
  - Portal hypertension [Unknown]
  - Hepatic cirrhosis [Recovering/Resolving]
  - Arthralgia [Unknown]
  - Dyspnoea [Unknown]
  - Laboratory test abnormal [Unknown]

NARRATIVE: CASE EVENT DATE: 20200728
